FAERS Safety Report 15347137 (Version 2)
Quarter: 2018Q3

REPORT INFORMATION
  Report Type: Spontaneous
  Country: US (occurrence: US)
  Receive Date: 20180904
  Receipt Date: 20180911
  Transmission Date: 20181010
  Serious: No
  Sender: FDA-Public Use
  Company Number: US-ASTRAZENECA-2018SF05432

PATIENT
  Age: 21938 Day
  Sex: Male
  Weight: 80.7 kg

DRUGS (2)
  1. BYDUREON BCISE [Suspect]
     Active Substance: EXENATIDE
     Indication: PARKINSON^S DISEASE
     Route: 058
     Dates: start: 2018
  2. BYDUREON [Suspect]
     Active Substance: EXENATIDE
     Indication: PARKINSON^S DISEASE
     Route: 058
     Dates: start: 201712, end: 2018

REACTIONS (7)
  - Weight decreased [Unknown]
  - Fatigue [Unknown]
  - Decreased appetite [Unknown]
  - Incorrect dose administered [Unknown]
  - Product use in unapproved indication [Unknown]
  - Device leakage [Unknown]
  - Off label use [Unknown]

NARRATIVE: CASE EVENT DATE: 20180815
